FAERS Safety Report 5149060-3 (Version None)
Quarter: 2006Q4

REPORT INFORMATION
  Report Type: 
  Country: None (occurrence: None)
  Receive Date: 20061113
  Receipt Date: 20061103
  Transmission Date: 20070319
  Serious: Yes (Hospitalization, Other)
  Sender: FDA-Public Use
  Company Number: DE-JNJFOC-20061004035

PATIENT
  Age: 4 Decade
  Sex: Female
  Weight: 65 kg

DRUGS (5)
  1. RISPERDAL [Suspect]
     Indication: DRUG USE FOR UNKNOWN INDICATION
     Route: 048
  2. HALOPERIDOL [Concomitant]
     Indication: DRUG USE FOR UNKNOWN INDICATION
  3. ATOSIL [Concomitant]
     Route: 048
  4. VALIQUID [Concomitant]
     Route: 048
  5. DALMADORM [Concomitant]
     Route: 048

REACTIONS (1)
  - LEUKOPENIA [None]
